FAERS Safety Report 8849051 (Version 2)
Quarter: 2013Q2

REPORT INFORMATION
  Report Type: Report from Study
  Country: US (occurrence: US)
  Receive Date: 20121019
  Receipt Date: 20130610
  Transmission Date: 20140414
  Serious: Yes (Other)
  Sender: FDA-Public Use
  Company Number: PHEH2012US015205

PATIENT
  Age: 85 Year
  Sex: Male

DRUGS (2)
  1. TASIGNA [Suspect]
     Indication: CHRONIC MYELOID LEUKAEMIA
     Dosage: 300 MG, DAILY
     Route: 048
     Dates: start: 201109
  2. TASIGNA [Suspect]
     Dosage: 150 MG, QD
     Route: 048
     Dates: start: 201302

REACTIONS (6)
  - Pulmonary oedema [Unknown]
  - Headache [Unknown]
  - Neck pain [Unknown]
  - Dyspnoea [Unknown]
  - Confusional state [Unknown]
  - Rash [Unknown]
